FAERS Safety Report 25612925 (Version 1)
Quarter: 2025Q3

REPORT INFORMATION
  Report Type: Spontaneous
  Country: US (occurrence: None)
  Receive Date: 20250726
  Receipt Date: 20250726
  Transmission Date: 20251021
  Serious: Yes (Life-Threatening, Hospitalization, Disabling, Other)
  Sender: FDA-CTU
  Company Number: None

PATIENT
  Age: 63 Year
  Sex: Female
  Weight: 71.1 kg

DRUGS (5)
  1. DESVENLAFAXINE SUCCINATE [Suspect]
     Active Substance: DESVENLAFAXINE SUCCINATE
     Indication: Depression
     Dosage: 30TABLET(S) DAILY ORAL
     Route: 048
     Dates: start: 20240114, end: 20250220
  2. DESVENLAFAXINE SUCCINATE [Suspect]
     Active Substance: DESVENLAFAXINE SUCCINATE
     Indication: Post-traumatic stress disorder
  3. BUSPIRONE HCL [Suspect]
     Active Substance: BUSPIRONE HYDROCHLORIDE
     Dosage: 30 TABLET(S) 3 TIMES A DAY ORAL
     Route: 048
     Dates: start: 20250107, end: 20250429
  4. ABILIFY [Suspect]
     Active Substance: ARIPIPRAZOLE
  5. LYRICA [Suspect]
     Active Substance: PREGABALIN

REACTIONS (5)
  - Serotonin syndrome [None]
  - Contraindicated product administered [None]
  - Product label issue [None]
  - Impaired quality of life [None]
  - Weight increased [None]

NARRATIVE: CASE EVENT DATE: 20250415
